FAERS Safety Report 13788711 (Version 1)
Quarter: 2017Q3

REPORT INFORMATION
  Report Type: Spontaneous
  Country: US (occurrence: US)
  Receive Date: 20170725
  Receipt Date: 20170725
  Transmission Date: 20171127
  Serious: No
  Sender: FDA-Public Use
  Company Number: US-JNJFOC-20170707074

PATIENT
  Age: 85 Year
  Sex: Female

DRUGS (9)
  1. TYLENOL [Concomitant]
     Active Substance: ACETAMINOPHEN
  2. ASPIRIN. [Concomitant]
     Active Substance: ASPIRIN
  3. CITRIC ACID W/GLUCOSE/POTASSIUM CITRATE/SODIU [Suspect]
     Active Substance: CITRIC ACID MONOHYDRATE\DEXTROSE\POTASSIUM CITRATE\SODIUM CHLORIDE
     Indication: PRODUCT USED FOR UNKNOWN INDICATION
     Dates: start: 20170705
  4. CLARITIN [Concomitant]
     Active Substance: LORATADINE
  5. GABAPENTIN. [Concomitant]
     Active Substance: GABAPENTIN
  6. ATIVAN [Concomitant]
     Active Substance: LORAZEPAM
  7. HYDROCODONE [Concomitant]
     Active Substance: HYDROCODONE
  8. IMBRUVICA [Suspect]
     Active Substance: IBRUTINIB
     Indication: MANTLE CELL LYMPHOMA
     Route: 048
     Dates: start: 20170630, end: 20170705
  9. ANASTROZOLE. [Concomitant]
     Active Substance: ANASTROZOLE

REACTIONS (2)
  - Diarrhoea [Recovering/Resolving]
  - Vomiting [Not Recovered/Not Resolved]

NARRATIVE: CASE EVENT DATE: 20170703
